FAERS Safety Report 25108719 (Version 1)
Quarter: 2025Q1

REPORT INFORMATION
  Report Type: Report from Study
  Country: US (occurrence: US)
  Receive Date: 20250322
  Receipt Date: 20250322
  Transmission Date: 20250409
  Serious: Yes (Hospitalization, Other)
  Sender: ABBVIE
  Company Number: US-ABBVIE-6167749

PATIENT
  Age: 64 Year
  Sex: Male
  Weight: 64.41 kg

DRUGS (2)
  1. HUMIRA [Suspect]
     Active Substance: ADALIMUMAB
     Indication: Rheumatoid arthritis
     Dosage: 40 MG,?START DATE TEXT: FIRST QUARTER OF 2024
     Route: 058
     Dates: start: 2024, end: 20250112
  2. PREDNISONE [Concomitant]
     Active Substance: PREDNISONE
     Indication: Product used for unknown indication

REACTIONS (7)
  - Cardiac ventricular thrombosis [Recovered/Resolved]
  - Cardiac disorder [Not Recovered/Not Resolved]
  - Rib fracture [Recovering/Resolving]
  - Procedural complication [Unknown]
  - Pain [Unknown]
  - Abdominal pain lower [Recovered/Resolved]
  - Troponin increased [Unknown]

NARRATIVE: CASE EVENT DATE: 20241101
